FAERS Safety Report 6239774-6 (Version None)
Quarter: 2009Q2

REPORT INFORMATION
  Report Type: 
  Country: None (occurrence: None)
  Receive Date: 20090623
  Receipt Date: 20090615
  Transmission Date: 20091009
  Serious: Yes (Other)
  Sender: FDA-Public Use
  Company Number: US-RANBAXY-2009US-24872

PATIENT

DRUGS (1)
  1. TRIAMCINOLONE [Suspect]
     Indication: SEASONAL ALLERGY
     Dosage: UNK, UNK
     Route: 065

REACTIONS (1)
  - TYPE 1 DIABETES MELLITUS [None]
